FAERS Safety Report 5972147-X (Version None)
Quarter: 2008Q4

REPORT INFORMATION
  Report Type: 
  Country: None (occurrence: None)
  Receive Date: 20081201
  Receipt Date: 20080801
  Transmission Date: 20090506
  Serious: No
  Sender: FDA-Public Use
  Company Number: US-TEVA-176126USA

PATIENT
  Sex: Male
  Weight: 90.8 kg

DRUGS (1)
  1. SALBUTAMOL SULFATE INHALATION, 0.09 MG [Suspect]
     Dosage: 2 PUFFS BID PRN
     Route: 055

REACTIONS (3)
  - CHEST PAIN [None]
  - NAUSEA [None]
  - PALPITATIONS [None]
